FAERS Safety Report 12925827 (Version 1)
Quarter: 2016Q4

REPORT INFORMATION
  Report Type: Spontaneous
  Country: US (occurrence: US)
  Receive Date: 20161108
  Receipt Date: 20161108
  Transmission Date: 20170207
  Serious: No
  Sender: FDA-Public Use
  Company Number: US-SA-2016SA189497

PATIENT
  Age: 81 Year
  Sex: Male

DRUGS (4)
  1. TRELSTAR - SLOW RELEASE [Concomitant]
     Dosage: 11.25MG
  2. ANDROGEL [Concomitant]
     Active Substance: TESTOSTERONE
     Dosage: 1% (25MG)
  3. ALIROCUMAB PREFILLED PEN [Concomitant]
     Active Substance: ALIROCUMAB
     Dates: start: 201604
  4. PRALUENT [Suspect]
     Active Substance: ALIROCUMAB
     Indication: HYPERLIPIDAEMIA
     Route: 058
     Dates: start: 201604

REACTIONS (1)
  - Injection site bruising [Not Recovered/Not Resolved]

NARRATIVE: CASE EVENT DATE: 201609
